FAERS Safety Report 6027913-1 (Version None)
Quarter: 2008Q4

REPORT INFORMATION
  Report Type: 
  Country: None (occurrence: None)
  Receive Date: 20081230
  Receipt Date: 20081216
  Transmission Date: 20090506
  Serious: Yes (Hospitalization, Other)
  Sender: FDA-Public Use
  Company Number: GXKR2008IR12009

PATIENT
  Age: 50 Year
  Sex: Female

DRUGS (3)
  1. ACETYLSALICYLIC ACID SRT [Suspect]
     Indication: THROMBOLYSIS
     Dosage: 325 MG, ONCE/SINGLE
  2. STREPTASE [Suspect]
     Indication: THROMBOLYSIS
     Dosage: 1500000 IU OVER 60 MINUTES, INFUSION
  3. GLYCERYL TRINITRATE (GLYCERYL TRINITRATE) [Concomitant]

REACTIONS (2)
  - DRUG INTERACTION [None]
  - HAEMARTHROSIS [None]
